FAERS Safety Report 4315135-1 (Version None)
Quarter: 2004Q1

REPORT INFORMATION
  Report Type: 
  Country: None (occurrence: None)
  Receive Date: 20040310
  Receipt Date: 20040305
  Transmission Date: 20041129
  Serious: Yes (Hospitalization)
  Sender: FDA-Public Use
  Company Number: JP-GLAXOSMITHKLINE-A0501723A

PATIENT

DRUGS (9)
  1. NAVELBINE [Suspect]
     Route: 042
     Dates: start: 20030825
  2. CISPLATIN [Suspect]
     Route: 042
     Dates: start: 20030825
  3. ELECTROLYTE SOLUTION [Concomitant]
     Dates: start: 20030901
  4. MANNITOL [Concomitant]
  5. LASIX [Concomitant]
  6. LACTATED RINGER'S [Concomitant]
  7. METOCLOPRAMIDE [Concomitant]
  8. KYTRIL [Concomitant]
  9. SOLU-MEDROL [Concomitant]

REACTIONS (5)
  - BLOOD UREA INCREASED [None]
  - DEHYDRATION [None]
  - MALAISE [None]
  - NAUSEA [None]
  - RENAL IMPAIRMENT [None]
